FAERS Safety Report 20708243 (Version 1)
Quarter: 2022Q2

REPORT INFORMATION
  Report Type: Spontaneous
  Country: US (occurrence: US)
  Receive Date: 20220414
  Receipt Date: 20220414
  Transmission Date: 20220721
  Serious: Yes (Hospitalization)
  Sender: FDA-Public Use
  Company Number: US-CADILA HEALTHCARE LIMITED-US-ZYDUS-076748

PATIENT

DRUGS (1)
  1. AMLODIPINE [Suspect]
     Active Substance: AMLODIPINE BESYLATE
     Indication: Product used for unknown indication
     Dosage: 10 MILLIGRAM
     Route: 065

REACTIONS (6)
  - Acute respiratory failure [Unknown]
  - Shock [Unknown]
  - Hyperdynamic left ventricle [Unknown]
  - Pulmonary oedema [Unknown]
  - Hypotension [Unknown]
  - Intentional overdose [Unknown]
